FAERS Safety Report 17901487 (Version 1)
Quarter: 2020Q2

REPORT INFORMATION
  Report Type: Spontaneous
  Country: DE (occurrence: DE)
  Receive Date: 20200616
  Receipt Date: 20200616
  Transmission Date: 20200714
  Serious: Yes (Hospitalization, Other)
  Sender: FDA-Public Use
  Company Number: DE-TEVA-2020-DE-1449621

PATIENT
  Age: 85 Year
  Sex: Female
  Weight: 80 kg

DRUGS (6)
  1. LEVOTHYROXIN-NATRIUM [Concomitant]
     Active Substance: LEVOTHYROXINE SODIUM
     Dosage: .1 MILLIGRAM DAILY; 1-0-0-0
     Route: 048
  2. HYDROCHLOROTHIAZID [Suspect]
     Active Substance: HYDROCHLOROTHIAZIDE
     Dosage: 25 MILLIGRAM DAILY; 1-0-0-0
     Route: 048
  3. TORASEMID [Suspect]
     Active Substance: TORSEMIDE
     Dosage: 5 MILLIGRAM DAILY; 1-0-0-0
     Route: 048
  4. METOPROLOL. [Concomitant]
     Active Substance: METOPROLOL
     Dosage: 47.5 MILLIGRAM DAILY; 1-0-0-0
     Route: 048
  5. SPIRONOLACTON [Suspect]
     Active Substance: SPIRONOLACTONE
     Dosage: 25 MILLIGRAM DAILY; 1-0-0-0
     Route: 048
  6. CANDESARTAN. [Suspect]
     Active Substance: CANDESARTAN
     Dosage: 32 MILLIGRAM DAILY; 1-0-0-0
     Route: 048

REACTIONS (6)
  - Product prescribing error [Unknown]
  - Renal impairment [Unknown]
  - Decreased appetite [Unknown]
  - Product monitoring error [Unknown]
  - Weight decreased [Unknown]
  - Dyspnoea [Unknown]
